FAERS Safety Report 5599828-4 (Version None)
Quarter: 2008Q1

REPORT INFORMATION
  Report Type: 
  Country: None (occurrence: None)
  Receive Date: 20080118
  Receipt Date: 20080118
  Transmission Date: 20080703
  Serious: Yes (Hospitalization)
  Sender: FDA-Public Use
  Company Number: None

PATIENT
  Sex: Male
  Weight: 84.9 kg

DRUGS (1)
  1. ONCASPAR [Suspect]
     Dosage: 2000 IU

REACTIONS (2)
  - ACIDOSIS [None]
  - HYPERTRIGLYCERIDAEMIA [None]
